FAERS Safety Report 10853615 (Version 3)
Quarter: 2015Q2

REPORT INFORMATION
  Report Type: Report from Study
  Country: GB (occurrence: GB)
  Receive Date: 20150223
  Receipt Date: 20150515
  Transmission Date: 20150821
  Serious: Yes (Hospitalization)
  Sender: FDA-Public Use
  Company Number: GB-JNJFOC-20150207086

PATIENT
  Age: 85 Year
  Sex: Female
  Weight: 92 kg

DRUGS (7)
  1. HYDROMOL [Concomitant]
     Route: 065
     Dates: start: 20140701
  2. ADCAL [Concomitant]
     Route: 065
     Dates: start: 20140414
  3. FOLIC ACID. [Concomitant]
     Active Substance: FOLIC ACID
     Route: 065
     Dates: start: 20111214
  4. DIPROSALIC [Concomitant]
     Active Substance: BETAMETHASONE DIPROPIONATE
     Route: 065
     Dates: start: 20140701
  5. USTEKINUMAB [Suspect]
     Active Substance: USTEKINUMAB
     Indication: PSORIASIS
     Route: 058
     Dates: start: 20100428
  6. PANADOL [Concomitant]
     Active Substance: ACETAMINOPHEN
     Route: 065
     Dates: start: 20030521
  7. POTASSIUM PERMANGANATE [Concomitant]
     Active Substance: POTASSIUM PERMANGANATE
     Route: 065
     Dates: start: 20140912

REACTIONS (6)
  - Lethargy [Unknown]
  - Lower respiratory tract infection [Recovered/Resolved]
  - Fall [Unknown]
  - Acute kidney injury [Unknown]
  - Haemoglobin decreased [Unknown]
  - Cellulitis [Recovered/Resolved]

NARRATIVE: CASE EVENT DATE: 2014
